FAERS Safety Report 7294388-4 (Version None)
Quarter: 2011Q1

REPORT INFORMATION
  Report Type: 
  Country: None (occurrence: None)
  Receive Date: 20110215
  Receipt Date: 20110208
  Transmission Date: 20110831
  Serious: Yes (Hospitalization)
  Sender: FDA-Public Use
  Company Number: US-AMGEN-USACT2011007201

PATIENT
  Age: 66 Year
  Sex: Female

DRUGS (6)
  1. BEVACIZUMAB [Concomitant]
     Dosage: UNK UNK, BLINDED
     Dates: start: 20100818, end: 20101203
  2. FILGRASTIM [Suspect]
     Dosage: UNK
     Dates: start: 20100819
  3. CYCLOPHOSPHAMIDE [Concomitant]
     Indication: BREAST CANCER
     Dosage: 600 MG/M2, UNK
     Route: 042
     Dates: start: 20100818, end: 20101020
  4. PACLITAXEL [Concomitant]
     Indication: BREAST CANCER
     Dosage: 80 MG/M2, UNK
     Route: 042
     Dates: start: 20100818
  5. DOXORUBICIN                        /00330902/ [Concomitant]
     Indication: BREAST CANCER
     Dosage: 60 MG/KG, UNK
     Route: 042
     Dates: start: 20100818, end: 20101020
  6. PEGFILGRASTIM [Suspect]
     Indication: BREAST CANCER
     Dosage: 6 MG/KG, UNK
     Route: 058
     Dates: start: 20100819, end: 20101020

REACTIONS (2)
  - LUNG INFILTRATION [None]
  - PNEUMONITIS [None]
